FAERS Safety Report 22590759 (Version 1)
Quarter: 2023Q2

REPORT INFORMATION
  Report Type: Spontaneous
  Country: US (occurrence: None)
  Receive Date: 20230610
  Receipt Date: 20230610
  Transmission Date: 20230721
  Serious: Yes (Other)
  Sender: FDA-Public Use
  Company Number: None

PATIENT
  Age: 43 Year
  Sex: Male
  Weight: 99.45 kg

DRUGS (7)
  1. SEMAGLUTIDE [Suspect]
     Active Substance: SEMAGLUTIDE
     Indication: Weight decreased
     Dosage: OTHER QUANTITY : 1 INJECTION(S);?OTHER FREQUENCY : 1 WEEKLY;?
     Route: 058
     Dates: start: 20230523, end: 20230606
  2. SEMAGLUTIDE [Suspect]
     Active Substance: SEMAGLUTIDE
     Indication: Ill-defined disorder
  3. ATENOLOL [Concomitant]
     Active Substance: ATENOLOL
  4. LISINOPRIL [Concomitant]
     Active Substance: LISINOPRIL
  5. CLONAZEPAM [Concomitant]
     Active Substance: CLONAZEPAM
  6. ROSUVASTATIN [Concomitant]
     Active Substance: ROSUVASTATIN
  7. LOW DOSE ASPRIN [Concomitant]
     Active Substance: ASPIRIN

REACTIONS (4)
  - Heart rate increased [None]
  - Heart rate irregular [None]
  - Therapeutic product effect decreased [None]
  - Product compounding quality issue [None]

NARRATIVE: CASE EVENT DATE: 20230609
